FAERS Safety Report 4627356-9 (Version None)
Quarter: 2005Q2

REPORT INFORMATION
  Report Type: 
  Country: None (occurrence: None)
  Receive Date: 20050405
  Receipt Date: 20050321
  Transmission Date: 20051028
  Serious: Yes (Death)
  Sender: FDA-Public Use
  Company Number: 2005S1001377

PATIENT
  Age: 54 Year
  Sex: Male

DRUGS (2)
  1. CLOZAPINE [Suspect]
     Dosage: 75 MG; BID; PO
     Route: 048
  2. CLOZAPINE [Suspect]
     Dosage: 200 MG ; BID; PO
     Route: 048

REACTIONS (1)
  - DEATH [None]
